FAERS Safety Report 7558951-5 (Version None)
Quarter: 2011Q2

REPORT INFORMATION
  Report Type: 
  Country: None (occurrence: None)
  Receive Date: 20110621
  Receipt Date: 20110614
  Transmission Date: 20111010
  Serious: Yes (Hospitalization)
  Sender: FDA-Public Use
  Company Number: JP-ASTELLAS-2011JP002143

PATIENT
  Sex: Male
  Weight: 61 kg

DRUGS (10)
  1. MAGNESIUM OXIDE [Concomitant]
     Indication: CONSTIPATION
     Dosage: 0.5 G, TID
     Route: 065
     Dates: start: 20040401
  2. AMLODIPINE [Concomitant]
     Indication: HYPERTENSION
     Dosage: 5 MG, BID
     Route: 065
     Dates: start: 20040601
  3. PURSENNID [Concomitant]
     Indication: CONSTIPATION
     Dosage: 48 MG, UID/QD
     Route: 065
     Dates: start: 20040601
  4. FUROSEMIDE [Concomitant]
     Indication: ANGINA PECTORIS
     Dosage: 10 MG, UID/QD
     Route: 065
     Dates: start: 20080701
  5. VESICARE [Suspect]
     Indication: HYPERTONIC BLADDER
     Dosage: 5 MG, UID/QD
     Route: 048
     Dates: start: 20100818, end: 20110218
  6. ALOSENN [Concomitant]
     Indication: CONSTIPATION
     Dosage: 1 G, UID/QD
     Route: 065
     Dates: start: 20040601
  7. CANDESARTAN CILEXETIL [Concomitant]
     Indication: HYPERTENSION
     Dosage: 12 MG, UID/QD
     Route: 065
     Dates: start: 20040601
  8. AMARYL [Concomitant]
     Indication: TYPE 2 DIABETES MELLITUS
     Dosage: 1 MG, UID/QD
     Route: 065
     Dates: start: 20070717
  9. MIGLITOL [Suspect]
     Indication: TYPE 2 DIABETES MELLITUS
     Dosage: 50 MG, UID/QD
     Route: 048
     Dates: start: 20100226, end: 20110309
  10. ASPIRIN [Concomitant]
     Indication: ANGINA PECTORIS
     Dosage: 100 MG, UID/QD
     Route: 065
     Dates: start: 20040601

REACTIONS (2)
  - THROMBOCYTOPENIA [None]
  - AGRANULOCYTOSIS [None]
